FAERS Safety Report 20388135 (Version 1)
Quarter: 2022Q1

REPORT INFORMATION
  Report Type: Spontaneous
  Country: US (occurrence: US)
  Receive Date: 20220128
  Receipt Date: 20220128
  Transmission Date: 20220423
  Serious: No
  Sender: FDA-Public Use
  Company Number: US-ALLERGAN-2138952US

PATIENT
  Age: 7 Year
  Sex: Male

DRUGS (1)
  1. BOTULINUM TOXIN TYPE A [Suspect]
     Active Substance: BOTULINUM TOXIN TYPE A
     Indication: Cerebral palsy
     Dosage: UNK UNK, SINGLE
     Dates: start: 2019, end: 2019

REACTIONS (1)
  - Angioedema [Unknown]
